FAERS Safety Report 6879291-3 (Version None)
Quarter: 2010Q3

REPORT INFORMATION
  Report Type: 
  Country: None (occurrence: None)
  Receive Date: 20100728
  Receipt Date: 20100714
  Transmission Date: 20110219
  Serious: Yes (Other)
  Sender: FDA-Public Use
  Company Number: US-SANOFI-AVENTIS-2010SA041304

PATIENT
  Age: 74 Year
  Sex: Male

DRUGS (8)
  1. MULTAQ [Suspect]
     Route: 048
     Dates: start: 20100524, end: 20100612
  2. COLCHICINE [Concomitant]
  3. MULTI-VITAMINS [Concomitant]
  4. ASPIRIN [Concomitant]
  5. CADUET COMBINATION [Concomitant]
  6. QUINAPRIL [Concomitant]
  7. ZETIA [Concomitant]
  8. AVODART [Concomitant]

REACTIONS (1)
  - HEPATOCELLULAR INJURY [None]
